FAERS Safety Report 6402344-0 (Version None)
Quarter: 2009Q4

REPORT INFORMATION
  Report Type: 
  Country: None (occurrence: None)
  Receive Date: 20091014
  Receipt Date: 20091014
  Transmission Date: 20100525
  Serious: No
  Sender: FDA-Public Use
  Company Number: None

PATIENT
  Sex: Female
  Weight: 72.1219 kg

DRUGS (1)
  1. PRISTIQ [Suspect]
     Indication: DEPRESSION
     Dosage: 1 DAILY
     Dates: start: 20090901, end: 20091001

REACTIONS (1)
  - BLOOD DISORDER [None]
